FAERS Safety Report 11130634 (Version 1)
Quarter: 2015Q2

REPORT INFORMATION
  Report Type: Spontaneous
  Country: US (occurrence: None)
  Receive Date: 20150521
  Receipt Date: 20150521
  Transmission Date: 20150821
  Serious: Yes (Other)
  Sender: FDA-Public Use
  Company Number: None

PATIENT
  Age: 59 Year
  Sex: Female
  Weight: 47.63 kg

DRUGS (5)
  1. CO-REG [Concomitant]
  2. LEVOTHYROXINE [Concomitant]
     Active Substance: LEVOTHYROXINE
  3. CARVEDILOL 3.125 MG [Suspect]
     Active Substance: CARVEDILOL
     Indication: BLOOD PRESSURE
     Dosage: 3.125 MG, AM/PM 2X
     Route: 048
     Dates: start: 20150422, end: 20150502
  4. COUMADIN [Concomitant]
     Active Substance: WARFARIN SODIUM
  5. LEVETIRACETAM. [Concomitant]
     Active Substance: LEVETIRACETAM

REACTIONS (3)
  - Blood pressure increased [None]
  - Dyspnoea [None]
  - Hypoaesthesia [None]

NARRATIVE: CASE EVENT DATE: 20150427
